FAERS Safety Report 20067000 (Version 2)
Quarter: 2021Q4

REPORT INFORMATION
  Report Type: Spontaneous
  Country: US (occurrence: US)
  Receive Date: 20211115
  Receipt Date: 20211207
  Transmission Date: 20220303
  Serious: No
  Sender: FDA-Public Use
  Company Number: US-BEH-2021138241

PATIENT
  Sex: Female

DRUGS (2)
  1. PRIVIGEN [Suspect]
     Active Substance: HUMAN IMMUNOGLOBULIN G
     Indication: Chronic hepatitis B
     Dosage: 60 GRAM, QD FOR 2 DAYS
     Route: 042
     Dates: start: 202012
  2. PRIVIGEN [Suspect]
     Active Substance: HUMAN IMMUNOGLOBULIN G
     Dosage: 60 GRAM, QD FOR 2 DAYS EVERY 4 WEEKS
     Route: 042
     Dates: start: 20201229

REACTIONS (4)
  - Bronchitis [Unknown]
  - No adverse event [Unknown]
  - Off label use [Unknown]
  - Infection [Unknown]
